FAERS Safety Report 14793959 (Version 2)
Quarter: 2018Q2

REPORT INFORMATION
  Report Type: Spontaneous
  Country: JP (occurrence: JP)
  Receive Date: 20180423
  Receipt Date: 20180427
  Transmission Date: 20180711
  Serious: Yes (Other)
  Sender: FDA-Public Use
  Company Number: JP-GLAXOSMITHKLINE-JP2018JPN068120

PATIENT
  Age: 70 Year
  Sex: Female

DRUGS (2)
  1. REQUIP [Suspect]
     Active Substance: ROPINIROLE HYDROCHLORIDE
     Indication: POSTURAL TREMOR
     Dosage: 0.75 MG, 1D
     Route: 048
  2. REQUIP [Suspect]
     Active Substance: ROPINIROLE HYDROCHLORIDE
     Dosage: 3.0 MG, 1D
     Route: 048

REACTIONS (4)
  - Back pain [Unknown]
  - Basal ganglion degeneration [Unknown]
  - Camptocormia [Recovered/Resolved]
  - Bradykinesia [Unknown]
